FAERS Safety Report 9426272 (Version 2)
Quarter: 2013Q3

REPORT INFORMATION
  Report Type: Spontaneous
  Country: US (occurrence: US)
  Receive Date: 20130730
  Receipt Date: 20130822
  Transmission Date: 20140515
  Serious: No
  Sender: FDA-Public Use
  Company Number: US-009507513-1307USA011623

PATIENT
  Age: 55 Year
  Sex: Male
  Weight: 71.66 kg

DRUGS (18)
  1. VICTRELIS [Suspect]
     Indication: HEPATITIS C
     Dosage: 800 MG, TID
     Route: 048
  2. REBETOL [Suspect]
     Indication: HEPATITIS C
     Dosage: 200 MG, UNK
     Route: 048
  3. PEGASYS [Suspect]
     Indication: HEPATITIS C
     Route: 058
  4. ACETAMINOPHEN [Concomitant]
     Dosage: 500 MG, UNK
     Route: 048
  5. HUMULIN [Concomitant]
  6. COZAAR [Concomitant]
     Route: 048
  7. ARMOUR THYROID TABLETS [Concomitant]
  8. CINNAMON [Concomitant]
  9. IRON (UNSPECIFIED) [Concomitant]
  10. GLUCOSAMINE [Concomitant]
     Dosage: 1500 COM
  11. GINKGO [Concomitant]
  12. ASCORBIC ACID [Concomitant]
  13. VITAMINS (UNSPECIFIED) [Concomitant]
  14. CALCIUM D (CALCIUM CARBONATE (+) CHOLECALCIFEROL) [Concomitant]
  15. FOLIC ACID [Concomitant]
  16. NEUPOGEN [Concomitant]
  17. CHOLECALCIFEROL [Concomitant]
  18. TESTOSTERONE [Concomitant]

REACTIONS (5)
  - White blood cell count decreased [Unknown]
  - Anaemia [Unknown]
  - Rash [Unknown]
  - Nausea [Unknown]
  - Dysgeusia [Unknown]
